FAERS Safety Report 15131058 (Version 1)
Quarter: 2018Q3

REPORT INFORMATION
  Report Type: Spontaneous
  Country: DE (occurrence: DE)
  Receive Date: 20180711
  Receipt Date: 20180711
  Transmission Date: 20181010
  Serious: Yes (Hospitalization)
  Sender: FDA-Public Use
  Company Number: PHHY2018DE036144

PATIENT
  Age: 83 Year
  Sex: Female
  Weight: 55 kg

DRUGS (5)
  1. RISPERIDONE. [Suspect]
     Active Substance: RISPERIDONE
     Indication: PRODUCT USED FOR UNKNOWN INDICATION
     Dosage: 1 MG, UNK (1?0?0?0)
     Route: 048
  2. AMANTADINE. [Suspect]
     Active Substance: AMANTADINE HYDROCHLORIDE
     Indication: PRODUCT USED FOR UNKNOWN INDICATION
     Dosage: 100 MG, UNK (1?0?0?0.5)
     Route: 048
  3. LEVOMEPROMAZINE [Suspect]
     Active Substance: LEVOMEPROMAZINE
     Indication: PRODUCT USED FOR UNKNOWN INDICATION
     Dosage: 25 MG, UNK  (0?0?0?1)
     Route: 048
  4. LEVOTHYROXIN [Concomitant]
     Active Substance: LEVOTHYROXINE
     Indication: PRODUCT USED FOR UNKNOWN INDICATION
     Dosage: 100 UG, UNK
     Route: 048
  5. RAMIPRIL. [Concomitant]
     Active Substance: RAMIPRIL
     Indication: PRODUCT USED FOR UNKNOWN INDICATION
     Dosage: 5 MG, 0.5?0?0?0, TABLETTEN
     Route: 048

REACTIONS (11)
  - Atrioventricular block second degree [Unknown]
  - General physical health deterioration [Unknown]
  - Tremor [Unknown]
  - Bradycardia [Unknown]
  - Weight decreased [Unknown]
  - Dehydration [Unknown]
  - Dry skin [Unknown]
  - Electrocardiogram QT prolonged [Unknown]
  - Musculoskeletal pain [Unknown]
  - Fatigue [Unknown]
  - Fall [Unknown]
